FAERS Safety Report 14726014 (Version 1)
Quarter: 2018Q2

REPORT INFORMATION
  Report Type: Spontaneous
  Country: BR (occurrence: BR)
  Receive Date: 20180406
  Receipt Date: 20180406
  Transmission Date: 20180711
  Serious: Yes (Hospitalization)
  Sender: FDA-Public Use
  Company Number: BR-ABBVIE-18P-020-2313282-00

PATIENT
  Age: 12 Year
  Sex: Male
  Weight: 36 kg

DRUGS (2)
  1. DEPAKOTE [Suspect]
     Active Substance: DIVALPROEX SODIUM
     Indication: MICROCEPHALY
     Dosage: IN THE MORNING (AROUND 8 AM) / 3 AT NIGHT (AROUND 8 PM)
     Route: 048
  2. DEPAKOTE [Suspect]
     Active Substance: DIVALPROEX SODIUM
     Indication: SEIZURE
     Route: 048

REACTIONS (4)
  - Complication associated with device [Unknown]
  - Pneumonia aspiration [Unknown]
  - Incorrect route of drug administration [Recovered/Resolved]
  - Reflux laryngitis [Not Recovered/Not Resolved]

NARRATIVE: CASE EVENT DATE: 2017
